FAERS Safety Report 19715921 (Version 3)
Quarter: 2021Q3

REPORT INFORMATION
  Report Type: Spontaneous
  Country: US (occurrence: US)
  Receive Date: 20210819
  Receipt Date: 20210929
  Transmission Date: 20211014
  Serious: No
  Sender: FDA-Public Use
  Company Number: US-AMGEN-USASP2021123860

PATIENT
  Age: 66 Year
  Sex: Male

DRUGS (3)
  1. REPATHA [Suspect]
     Active Substance: EVOLOCUMAB
     Indication: BLOOD CHOLESTEROL INCREASED
     Dosage: 420 MILLIGRAM, QMO
     Route: 065
     Dates: start: 20210810
  2. TOUJEO [Concomitant]
     Active Substance: INSULIN GLARGINE
     Indication: DIABETES MELLITUS
     Dosage: UNK
  3. SOLIQUA 100/33 [Concomitant]
     Active Substance: INSULIN GLARGINE\LIXISENATIDE
     Indication: DIABETES MELLITUS
     Dosage: UNK

REACTIONS (1)
  - Wrong technique in product usage process [Unknown]

NARRATIVE: CASE EVENT DATE: 20210810
